FAERS Safety Report 20653689 (Version 1)
Quarter: 2022Q1

REPORT INFORMATION
  Report Type: Spontaneous
  Country: US (occurrence: US)
  Receive Date: 20220330
  Receipt Date: 20220330
  Transmission Date: 20220424
  Serious: No
  Sender: FDA-Public Use
  Company Number: US-SANOFI-01035190

PATIENT
  Age: 66 Year
  Sex: Female

DRUGS (2)
  1. LANTUS SOLOSTAR [Suspect]
     Active Substance: INSULIN GLARGINE
     Indication: Type 2 diabetes mellitus
     Dosage: 8 IU
     Dates: start: 20220323
  2. LANTUS SOLOSTAR [Suspect]
     Active Substance: INSULIN GLARGINE
     Dosage: 7 IU

REACTIONS (2)
  - Blood glucose abnormal [Unknown]
  - Product use issue [Unknown]

NARRATIVE: CASE EVENT DATE: 20220325
